FAERS Safety Report 7729613-6 (Version None)
Quarter: 2011Q3

REPORT INFORMATION
  Report Type: 
  Country: None (occurrence: None)
  Receive Date: 20110817
  Receipt Date: 20110518
  Transmission Date: 20111222
  Serious: Yes (Other)
  Sender: FDA-Public Use
  Company Number: 201110527

PATIENT

DRUGS (1)
  1. LIORESAL [Suspect]
     Indication: MUSCLE SPASTICITY
     Dosage: 604.3 MCG, DAILY, INTRATHECAL
     Route: 037

REACTIONS (2)
  - MUSCLE TIGHTNESS [None]
  - THERAPEUTIC RESPONSE DECREASED [None]
